FAERS Safety Report 7340478-7 (Version None)
Quarter: 2011Q1

REPORT INFORMATION
  Report Type: 
  Country: None (occurrence: None)
  Receive Date: 20110309
  Receipt Date: 20110224
  Transmission Date: 20110831
  Serious: Yes (Hospitalization)
  Sender: FDA-Public Use
  Company Number: FR-JNJFOC-20080901056

PATIENT
  Age: 20 Year
  Sex: Male

DRUGS (5)
  1. ACETAMINOPHEN AND TRAMADOL HCL [Suspect]
     Indication: JOINT SPRAIN
     Dosage: 37.5/325 MG TABLETS
     Route: 048
     Dates: start: 20080803, end: 20080804
  2. ACETAMINOPHEN AND TRAMADOL HCL [Suspect]
     Indication: PAIN
     Dosage: 37.5/325 MG TABLETS
     Route: 048
     Dates: start: 20080803, end: 20080804
  3. HUMALOG [Suspect]
     Indication: TYPE 1 DIABETES MELLITUS
     Dosage: 11 IU, 13 IU AND 15 IU DAILY
     Route: 065
  4. LANTUS [Suspect]
     Indication: TYPE 1 DIABETES MELLITUS
     Route: 065
  5. ARIXTRA [Concomitant]
     Indication: JOINT SPRAIN
     Route: 065

REACTIONS (1)
  - HYPOGLYCAEMIA [None]
